FAERS Safety Report 19615948 (Version 1)
Quarter: 2021Q3

REPORT INFORMATION
  Report Type: Spontaneous
  Country: US (occurrence: US)
  Receive Date: 20210727
  Receipt Date: 20210727
  Transmission Date: 20211014
  Serious: No
  Sender: FDA-Public Use
  Company Number: US-ALKERMES INC.-ALK-2021-003766

PATIENT
  Age: 30 Year
  Sex: Male

DRUGS (1)
  1. VIVITROL [Suspect]
     Active Substance: NALTREXONE
     Indication: ALCOHOLISM
     Dosage: 380 MILLIGRAM, QMO
     Route: 030
     Dates: start: 20210716

REACTIONS (11)
  - Anxiety [Not Recovered/Not Resolved]
  - Strabismus [Not Recovered/Not Resolved]
  - Panic attack [Not Recovered/Not Resolved]
  - Hallucination [Not Recovered/Not Resolved]
  - Tension [Not Recovered/Not Resolved]
  - Discomfort [Not Recovered/Not Resolved]
  - Alcoholism [Not Recovered/Not Resolved]
  - Nausea [Not Recovered/Not Resolved]
  - Confusional state [Not Recovered/Not Resolved]
  - Dizziness [Not Recovered/Not Resolved]
  - Headache [Not Recovered/Not Resolved]

NARRATIVE: CASE EVENT DATE: 202107
